FAERS Safety Report 5797016-X (Version None)
Quarter: 2008Q2

REPORT INFORMATION
  Report Type: 
  Country: None (occurrence: None)
  Receive Date: 20080627
  Receipt Date: 20080612
  Transmission Date: 20081010
  Serious: Yes (Death)
  Sender: FDA-Public Use
  Company Number: 029172

PATIENT
  Age: 45 Year
  Sex: Female

DRUGS (4)
  1. CLARAVIS [Suspect]
     Indication: ANAPLASTIC ASTROCYTOMA
     Dosage: 120 MG, QOD, ORAL; 160 MG QOD, ORAL
     Route: 048
     Dates: start: 20080414, end: 20080601
  2. CLARAVIS [Suspect]
     Indication: RECURRENT CANCER
     Dosage: 120 MG, QOD, ORAL; 160 MG QOD, ORAL
     Route: 048
     Dates: start: 20080414, end: 20080601
  3. CLARAVIS [Suspect]
     Indication: ANAPLASTIC ASTROCYTOMA
     Dosage: 120 MG, QOD, ORAL; 160 MG QOD, ORAL
     Route: 048
     Dates: start: 20080414, end: 20080601
  4. CLARAVIS [Suspect]
     Indication: RECURRENT CANCER
     Dosage: 120 MG, QOD, ORAL; 160 MG QOD, ORAL
     Route: 048
     Dates: start: 20080414, end: 20080601

REACTIONS (3)
  - ANAPLASTIC ASTROCYTOMA [None]
  - OFF LABEL USE [None]
  - RECURRENT CANCER [None]
